FAERS Safety Report 21413353 (Version 1)
Quarter: 2022Q4

REPORT INFORMATION
  Report Type: Other
  Country: AU (occurrence: AU)
  Receive Date: 20221006
  Receipt Date: 20221006
  Transmission Date: 20230112
  Serious: Yes (Other)
  Sender: FDA-Public Use
  Company Number: AU-TOLMAR, INC.-22AU036770

PATIENT

DRUGS (2)
  1. ELIGARD [Suspect]
     Active Substance: LEUPROLIDE ACETATE
     Indication: Prostate cancer
     Dosage: 45 MILLIGRAM, Q 6 MONTH
     Dates: start: 202206
  2. MORPHINE [Concomitant]
     Active Substance: MORPHINE
     Indication: Arthralgia

REACTIONS (4)
  - Metastases to bone [Unknown]
  - Metastases to lymph nodes [Unknown]
  - Prostatic specific antigen increased [Unknown]
  - Occipital neuralgia [Unknown]
